FAERS Safety Report 21380334 (Version 1)
Quarter: 2022Q3

REPORT INFORMATION
  Report Type: Spontaneous
  Country: CZ (occurrence: CZ)
  Receive Date: 20220927
  Receipt Date: 20220927
  Transmission Date: 20221027
  Serious: Yes (Life-Threatening, Hospitalization, Other)
  Sender: FDA-Public Use
  Company Number: None

PATIENT
  Age: 67 Year
  Sex: Female
  Weight: 77 kg

DRUGS (2)
  1. PACLITAXEL [Suspect]
     Active Substance: PACLITAXEL
     Indication: Angiosarcoma
     Dosage: DOSE 1
     Route: 042
     Dates: start: 20220816, end: 20220816
  2. PACLITAXEL [Suspect]
     Active Substance: PACLITAXEL
     Dosage: DOSE 2
     Route: 042
     Dates: start: 20220830, end: 20220830

REACTIONS (5)
  - Erythema [Recovering/Resolving]
  - Dyspnoea [Recovering/Resolving]
  - Altered state of consciousness [Recovering/Resolving]
  - Drug hypersensitivity [Recovering/Resolving]
  - Chills [Recovering/Resolving]

NARRATIVE: CASE EVENT DATE: 20220830
